FAERS Safety Report 18725935 (Version 5)
Quarter: 2021Q3

REPORT INFORMATION
  Report Type: Report from Study
  Country: BR (occurrence: BR)
  Receive Date: 20210111
  Receipt Date: 20210924
  Transmission Date: 20211014
  Serious: Yes (Other)
  Sender: FDA-Public Use
  Company Number: NVSC2020BR333216

PATIENT
  Age: 43 Year
  Sex: Female
  Weight: 80 kg

DRUGS (7)
  1. SULFASALAZINE. [Concomitant]
     Active Substance: SULFASALAZINE
     Dosage: 1.5 G, QD (05 JAN UNSPECIFIED YEAR) CONTINOUS USE
     Route: 065
  2. CANDESARTAN. [Concomitant]
     Active Substance: CANDESARTAN
     Indication: PRODUCT USED FOR UNKNOWN INDICATION
     Dosage: UNK
     Route: 065
     Dates: start: 202007
  3. COSENTYX [Suspect]
     Active Substance: SECUKINUMAB
     Indication: SPONDYLOARTHROPATHY
  4. SULFASALAZINE. [Concomitant]
     Active Substance: SULFASALAZINE
     Indication: PRODUCT USED FOR UNKNOWN INDICATION
     Dosage: 2 G, UNKNOWN
     Route: 065
     Dates: start: 2012
  5. VENLAFAXINE [Concomitant]
     Active Substance: VENLAFAXINE HYDROCHLORIDE
     Indication: PRODUCT USED FOR UNKNOWN INDICATION
     Dosage: UNK
     Route: 065
     Dates: start: 2016
  6. COSENTYX [Suspect]
     Active Substance: SECUKINUMAB
     Indication: ANKYLOSING SPONDYLITIS
     Dosage: 150 MG, QMO
     Route: 065
     Dates: start: 20191217, end: 202012
  7. PREDNISOLONE. [Concomitant]
     Active Substance: PREDNISOLONE
     Indication: PRODUCT USED FOR UNKNOWN INDICATION
     Dosage: UNK
     Route: 065
     Dates: start: 2016

REACTIONS (19)
  - Skin infection [Unknown]
  - Discomfort [Unknown]
  - Urinary tract infection [Recovered/Resolved]
  - Gastrointestinal disorder [Unknown]
  - Injection site inflammation [Recovering/Resolving]
  - Injection site pain [Recovering/Resolving]
  - Immunodeficiency [Unknown]
  - Localised infection [Unknown]
  - Nail infection [Unknown]
  - Gastritis [Unknown]
  - Duodenitis [Unknown]
  - Fatigue [Unknown]
  - Pseudopolyp [Unknown]
  - Infection [Unknown]
  - Diverticulitis [Unknown]
  - Abdominal discomfort [Unknown]
  - Condition aggravated [Unknown]
  - Gastrointestinal inflammation [Unknown]
  - Muscular weakness [Unknown]

NARRATIVE: CASE EVENT DATE: 202009
